FAERS Safety Report 14516500 (Version 2)
Quarter: 2018Q1

REPORT INFORMATION
  Report Type: Spontaneous
  Country: US (occurrence: US)
  Receive Date: 20180212
  Receipt Date: 20180222
  Transmission Date: 20180509
  Serious: Yes (Hospitalization, Other)
  Sender: FDA-Public Use
  Company Number: US-VISTAPHARM, INC.-VER201802-000335

PATIENT
  Age: 35 Year
  Sex: Male

DRUGS (8)
  1. RESTORIL [Concomitant]
     Active Substance: TEMAZEPAM
     Route: 048
  2. ZOLPIDEM [Concomitant]
     Active Substance: ZOLPIDEM\ZOLPIDEM TARTRATE
     Indication: INSOMNIA
  3. ATIVAN [Concomitant]
     Active Substance: LORAZEPAM
     Route: 048
  4. GLUCAGON. [Concomitant]
     Active Substance: GLUCAGON
  5. NARCANE [Concomitant]
  6. VALPROIC ACID. [Suspect]
     Active Substance: VALPROIC ACID
     Indication: BIPOLAR DISORDER
     Route: 048
  7. THIAMINE. [Concomitant]
     Active Substance: THIAMINE
  8. ATIVAN [Concomitant]
     Active Substance: LORAZEPAM
     Indication: ANXIETY
     Route: 048

REACTIONS (3)
  - Hyperammonaemia [Recovering/Resolving]
  - Coma [Recovering/Resolving]
  - Encephalopathy [Recovering/Resolving]
